FAERS Safety Report 20861156 (Version 5)
Quarter: 2023Q1

REPORT INFORMATION
  Report Type: Report from Study
  Country: JP (occurrence: JP)
  Receive Date: 20220523
  Receipt Date: 20230210
  Transmission Date: 20230418
  Serious: Yes (Hospitalization)
  Sender: FDA-Public Use
  Company Number: JP-ELI_LILLY_AND_COMPANY-JP202204011876

PATIENT
  Age: 76 Year
  Sex: Male
  Weight: 66 kg

DRUGS (2)
  1. RETEVMO [Suspect]
     Active Substance: SELPERCATINIB
     Indication: Medullary thyroid cancer
     Dosage: 320 MG, UNKNOWN
     Route: 048
     Dates: start: 20220408, end: 20220502
  2. RETEVMO [Suspect]
     Active Substance: SELPERCATINIB
     Dosage: 160 MG, UNKNOWN
     Route: 048
     Dates: start: 20220503, end: 20220516

REACTIONS (2)
  - Hepatic function abnormal [Recovered/Resolved]
  - Disseminated intravascular coagulation [Recovered/Resolved]

NARRATIVE: CASE EVENT DATE: 20220516
